FAERS Safety Report 11370621 (Version 2)
Quarter: 2015Q3

REPORT INFORMATION
  Report Type: Spontaneous
  Country: BR (occurrence: BR)
  Receive Date: 20150812
  Receipt Date: 20150821
  Transmission Date: 20151125
  Serious: Yes (Hospitalization)
  Sender: FDA-Public Use
  Company Number: BR-PFIZER INC-2015264139

PATIENT
  Age: 76 Year
  Sex: Female
  Weight: 50 kg

DRUGS (10)
  1. FRONTAL XR [Suspect]
     Active Substance: ALPRAZOLAM
     Indication: DEPRESSION
     Dosage: 0.5 MG (1 TABLET), 1X/DAY (AT NIGHT)
     Route: 048
     Dates: start: 201504
  2. FRONTAL XR [Suspect]
     Active Substance: ALPRAZOLAM
     Indication: ANXIETY
  3. LOSARTAN. [Suspect]
     Active Substance: LOSARTAN
     Dosage: 50 MG, 2 TABLETS PER DAY ( 1 IN THE MORNING ANF OTHER AT NIGHT)
     Route: 048
  4. DIELOFT [Concomitant]
     Active Substance: SERTRALINE HYDROCHLORIDE
     Dosage: ONE TABLET (50 MG), 1X/DAY (AT NIGHT)
     Dates: start: 201505
  5. ASPIRINA [Concomitant]
     Active Substance: ASPIRIN
     Dosage: 1 TABLET PER DAY
     Dates: start: 201504
  6. TREZOR [Concomitant]
     Active Substance: ROSUVASTATIN CALCIUM
     Indication: BLOOD CHOLESTEROL INCREASED
     Dosage: 10 MG (1 TABLET) PER DAY, AT NIGHT
  7. LOSARTAN. [Suspect]
     Active Substance: LOSARTAN
     Indication: BLOOD PRESSURE INCREASED
     Dosage: ONE TABLET (50 MG), 1X/DAY (AT NIGHT)
     Route: 048
  8. CLOPIDOGREL BISULFATE. [Concomitant]
     Active Substance: CLOPIDOGREL BISULFATE
     Indication: CARDIAC DISORDER
     Dosage: 75 MG (1 TABLET) PER DAY (AFTER LUNCH)
     Dates: start: 20150718
  9. OMEPRAZOLE. [Concomitant]
     Active Substance: OMEPRAZOLE
     Indication: GASTROOESOPHAGEAL REFLUX DISEASE
     Dosage: 20 MG (1 TABLET) IN THE MORNING
     Dates: start: 201507
  10. OSTEOTEC [Concomitant]
     Indication: OSTEOPOROSIS
     Dosage: 150 MG, UNK

REACTIONS (6)
  - Product use issue [Not Recovered/Not Resolved]
  - Disease progression [Recovered/Resolved]
  - Weight decreased [Not Recovered/Not Resolved]
  - Feeling abnormal [Unknown]
  - Aortic disorder [Recovered/Resolved]
  - Drug ineffective [Unknown]

NARRATIVE: CASE EVENT DATE: 2015
